FAERS Safety Report 26088826 (Version 1)
Quarter: 2025Q4

REPORT INFORMATION
  Report Type: Report from Study
  Country: US (occurrence: None)
  Receive Date: 20251125
  Receipt Date: 20251125
  Transmission Date: 20260117
  Serious: Yes (Other)
  Sender: UCB
  Company Number: US-UCBSA-2025073871

PATIENT
  Age: 31 Year
  Weight: 86 kg

DRUGS (1)
  1. FENFLURAMINE HYDROCHLORIDE [Suspect]
     Active Substance: FENFLURAMINE HYDROCHLORIDE
     Indication: Product used for unknown indication
     Dosage: 1.5 MILLILITER, 2X/DAY (BID)

REACTIONS (2)
  - Pulmonary valve incompetence [Not Recovered/Not Resolved]
  - Aortic dilatation [Not Recovered/Not Resolved]
